FAERS Safety Report 25502367 (Version 2)
Quarter: 2025Q3

REPORT INFORMATION
  Report Type: Spontaneous
  Country: PE (occurrence: PE)
  Receive Date: 20250702
  Receipt Date: 20250718
  Transmission Date: 20251021
  Serious: Yes (Hospitalization, Other)
  Sender: AMGEN
  Company Number: PE-PFIZER INC-PV202500011350

PATIENT
  Sex: Female

DRUGS (1)
  1. ENBREL [Suspect]
     Active Substance: ETANERCEPT
     Indication: Product used for unknown indication
     Route: 058
     Dates: start: 202203, end: 202501

REACTIONS (4)
  - Gastric infection [Recovered/Resolved]
  - Sepsis [Recovered/Resolved]
  - Tuberculosis [Unknown]
  - Malaise [Unknown]

NARRATIVE: CASE EVENT DATE: 20250109
